FAERS Safety Report 13909681 (Version 1)
Quarter: 2017Q3

REPORT INFORMATION
  Report Type: Report from Study
  Country: US (occurrence: US)
  Receive Date: 20170828
  Receipt Date: 20170828
  Transmission Date: 20171127
  Serious: No
  Sender: FDA-Public Use
  Company Number: US-AMGEN-USASL2017127963

PATIENT
  Age: 61 Year
  Sex: Female

DRUGS (1)
  1. ENBREL [Suspect]
     Active Substance: ETANERCEPT
     Indication: RHEUMATOID ARTHRITIS
     Dosage: 50 MG, QWK
     Route: 065

REACTIONS (5)
  - Vaccination site erythema [Not Recovered/Not Resolved]
  - Vaccination site warmth [Not Recovered/Not Resolved]
  - Labelled drug-disease interaction medication error [Unknown]
  - Vaccination site pain [Not Recovered/Not Resolved]
  - Vaccination site swelling [Not Recovered/Not Resolved]

NARRATIVE: CASE EVENT DATE: 201708
